FAERS Safety Report 5619768-1 (Version None)
Quarter: 2008Q1

REPORT INFORMATION
  Report Type: 
  Country: None (occurrence: None)
  Receive Date: 20080208
  Receipt Date: 20080129
  Transmission Date: 20080703
  Serious: Yes (Death, Other)
  Sender: FDA-Public Use
  Company Number: JP-JNJFOC-20080200335

PATIENT
  Sex: Female

DRUGS (7)
  1. FINIBAX [Suspect]
     Indication: ENDOCARDITIS
     Route: 041
  2. KAKODIN [Concomitant]
     Indication: HYPOTENSION
     Route: 041
  3. VANCOMYCIN [Concomitant]
     Indication: ENDOCARDITIS
     Route: 041
  4. RYTHMODAN P [Concomitant]
     Indication: SUPRAVENTRICULAR EXTRASYSTOLES
     Route: 042
  5. MEYLON [Concomitant]
     Indication: METABOLIC ACIDOSIS
     Route: 041
  6. XYLOCAINE [Concomitant]
     Indication: SUPRAVENTRICULAR EXTRASYSTOLES
     Route: 042
  7. NOR-ADRENALIN [Concomitant]
     Indication: HYPOTENSION
     Route: 041

REACTIONS (6)
  - ALANINE AMINOTRANSFERASE INCREASED [None]
  - ASPARTATE AMINOTRANSFERASE INCREASED [None]
  - BLOOD BILIRUBIN INCREASED [None]
  - BLOOD LACTATE DEHYDROGENASE INCREASED [None]
  - ENDOCARDITIS [None]
  - PLATELET COUNT DECREASED [None]
